FAERS Safety Report 6141770-4 (Version None)
Quarter: 2009Q2

REPORT INFORMATION
  Report Type: 
  Country: None (occurrence: None)
  Receive Date: 20090402
  Receipt Date: 20080819
  Transmission Date: 20091009
  Serious: No
  Sender: FDA-Public Use
  Company Number: US-ABBOTT-08P-163-0471437-00

PATIENT
  Age: 51 Year
  Sex: Female
  Weight: 79.904 kg

DRUGS (1)
  1. LUPRON DEPOT [Suspect]
     Indication: HIGH FREQUENCY ABLATION
     Route: 030
     Dates: start: 20080812

REACTIONS (3)
  - ANXIETY [None]
  - FEELING JITTERY [None]
  - VISION BLURRED [None]
